FAERS Safety Report 8161793-3 (Version None)
Quarter: 2012Q1

REPORT INFORMATION
  Report Type: 
  Country: None (occurrence: None)
  Receive Date: 20120224
  Receipt Date: 20110420
  Transmission Date: 20120608
  Serious: Yes (Other)
  Sender: FDA-Public Use
  Company Number: US-BRISTOL-MYERS SQUIBB COMPANY-15689656

PATIENT
  Age: 68 Year
  Sex: Female

DRUGS (7)
  1. METOPROLOL TARTRATE [Concomitant]
  2. AVANDIA [Suspect]
     Indication: TYPE 2 DIABETES MELLITUS
     Route: 048
     Dates: start: 20100101, end: 20110201
  3. GLIPIZIDE [Suspect]
     Indication: TYPE 2 DIABETES MELLITUS
     Route: 048
     Dates: start: 20100101, end: 20110201
  4. ASPIRIN [Concomitant]
  5. METFORMIN HCL [Suspect]
     Indication: TYPE 2 DIABETES MELLITUS
     Dosage: STARTED 7 YEARS AGO.
     Route: 048
     Dates: end: 20110201
  6. PRAVASTATIN SODIUM [Concomitant]
  7. TRICOR [Concomitant]

REACTIONS (3)
  - LOSS OF CONSCIOUSNESS [None]
  - BLOOD GLUCOSE DECREASED [None]
  - BLOOD GLUCOSE INCREASED [None]
